APPROVED DRUG PRODUCT: LEQVIO
Active Ingredient: INCLISIRAN SODIUM
Strength: EQ 284MG BASE/1.5ML (EQ 189MG BASE/ML)
Dosage Form/Route: SOLUTION;SUBCUTANEOUS
Application: N214012 | Product #001
Applicant: NOVARTIS PHARMACEUTICALS CORP
Approved: Dec 22, 2021 | RLD: Yes | RS: Yes | Type: RX

PATENTS:
Patent 10125369 | Expires: Aug 18, 2034
Patent 10851377 | Expires: Aug 25, 2036
Patent 10131907 | Expires: Aug 24, 2028
Patent 9370582 | Expires: Dec 4, 2028
Patent 8828956 | Expires: Dec 4, 2028
Patent 8809292 | Expires: May 10, 2027
Patent 8222222 | Expires: Dec 29, 2027
Patent 8106022 | Expires: Dec 12, 2029
Patent 10806791 | Expires: Dec 4, 2028
Patent 12460206 | Expires: Aug 18, 2034

EXCLUSIVITY:
Code: NCE | Date: Dec 22, 2026